FAERS Safety Report 25415604 (Version 1)
Quarter: 2025Q2

REPORT INFORMATION
  Report Type: Spontaneous
  Country: CN (occurrence: CN)
  Receive Date: 20250610
  Receipt Date: 20250610
  Transmission Date: 20250716
  Serious: Yes (Hospitalization, Other)
  Sender: RISING PHARMACEUTICALS
  Company Number: CN-RISINGPHARMA-CN-2025RISLIT00274

PATIENT
  Age: 80 Year
  Sex: Female

DRUGS (4)
  1. PREDNISONE [Suspect]
     Active Substance: PREDNISONE
     Indication: Organising pneumonia
     Route: 048
  2. PREDNISONE [Suspect]
     Active Substance: PREDNISONE
     Route: 048
  3. MOXIFLOXACIN [Concomitant]
     Active Substance: MOXIFLOXACIN
     Route: 065
  4. PIPERACILLIN AND TAZOBACTAM [Concomitant]
     Active Substance: PIPERACILLIN SODIUM\TAZOBACTAM SODIUM
     Route: 065

REACTIONS (3)
  - Pulmonary embolism [Recovered/Resolved]
  - Hypoxia [Recovered/Resolved]
  - Product use in unapproved indication [Unknown]
